FAERS Safety Report 11230586 (Version 1)
Quarter: 2015Q2

REPORT INFORMATION
  Report Type: Spontaneous
  Country: US (occurrence: None)
  Receive Date: 20150629
  Receipt Date: 20150629
  Transmission Date: 20150821
  Serious: Yes (Life-Threatening, Hospitalization)
  Sender: FDA-Public Use
  Company Number: None

PATIENT
  Sex: Female

DRUGS (3)
  1. PROAIR HFA [Suspect]
     Active Substance: ALBUTEROL SULFATE
     Indication: ASTHMA
     Dosage: PUFF
     Route: 055
  2. PRENATAL [Concomitant]
     Active Substance: VITAMINS
  3. ALBUTEROL INHALER NEBULIZER [Concomitant]
     Active Substance: ALBUTEROL

REACTIONS (3)
  - Dyspnoea [None]
  - Asthma [None]
  - Drug effect decreased [None]
